FAERS Safety Report 23873173 (Version 1)
Quarter: 2024Q2

REPORT INFORMATION
  Report Type: Spontaneous
  Country: US (occurrence: None)
  Receive Date: 20240517
  Receipt Date: 20240517
  Transmission Date: 20240715
  Serious: Yes (Hospitalization, Other)
  Sender: FDA-Public Use
  Company Number: None

PATIENT
  Age: 54 Year
  Sex: Female

DRUGS (1)
  1. AMBRISENTAN [Suspect]
     Active Substance: AMBRISENTAN
     Indication: Pulmonary hypertension
     Dosage: FREQUENCY : DAILY;?
     Route: 048
     Dates: start: 20230706

REACTIONS (6)
  - Strongyloidiasis [None]
  - Hypotension [None]
  - Nausea [None]
  - Abdominal pain [None]
  - Diarrhoea [None]
  - Portal vein thrombosis [None]

NARRATIVE: CASE EVENT DATE: 20240517
